FAERS Safety Report 12435586 (Version 1)
Quarter: 2016Q2

REPORT INFORMATION
  Report Type: Spontaneous
  Country: US (occurrence: US)
  Receive Date: 20160603
  Receipt Date: 20160603
  Transmission Date: 20160815
  Serious: No
  Sender: FDA-Public Use
  Company Number: US-ROCHE-1598398

PATIENT
  Age: 68 Year
  Sex: Female
  Weight: 62.65 kg

DRUGS (1)
  1. XELODA [Suspect]
     Active Substance: CAPECITABINE
     Indication: BREAST CANCER
     Dosage: 2X1500 MG
     Route: 048
     Dates: start: 20150409

REACTIONS (4)
  - Pain [Unknown]
  - Blood pressure increased [Unknown]
  - Rash [Unknown]
  - Pruritus [Unknown]
